FAERS Safety Report 7544525-9 (Version None)
Quarter: 2011Q2

REPORT INFORMATION
  Report Type: 
  Country: None (occurrence: None)
  Receive Date: 20110613
  Receipt Date: 20110607
  Transmission Date: 20111010
  Serious: Yes (Hospitalization)
  Sender: FDA-Public Use
  Company Number: JP-ABBOTT-11P-087-0728261-00

PATIENT
  Sex: Male
  Weight: 56 kg

DRUGS (5)
  1. MINOCYCLINE HCL [Suspect]
     Indication: PYREXIA
     Route: 065
     Dates: start: 20080101
  2. CEFDINIR [Suspect]
     Indication: PYREXIA
     Route: 065
     Dates: start: 20080101
  3. LEVOFLOXACIN [Suspect]
     Indication: PYREXIA
     Route: 065
     Dates: start: 20080101
  4. CEFAZOLIN [Suspect]
     Indication: PYREXIA
     Route: 065
     Dates: start: 20080101
  5. FOSFOMYCIN [Suspect]
     Indication: PYREXIA
     Route: 065
     Dates: start: 20080101

REACTIONS (1)
  - COLITIS ULCERATIVE [None]
